FAERS Safety Report 9276450 (Version 3)
Quarter: 2013Q2

REPORT INFORMATION
  Report Type: Spontaneous
  Country: US (occurrence: US)
  Receive Date: 20130507
  Receipt Date: 20130531
  Transmission Date: 20140414
  Serious: No
  Sender: FDA-Public Use
  Company Number: US-PFIZER INC-2013137064

PATIENT
  Age: 62 Year
  Sex: Female
  Weight: 59 kg

DRUGS (3)
  1. PREMPRO [Suspect]
     Indication: HOT FLUSH
     Dosage: 0.625/2.5 MG
     Route: 048
  2. FLOVENT [Concomitant]
     Indication: ASTHMA
     Dosage: UNK
  3. THEOPHYLLINE [Concomitant]
     Dosage: UNK

REACTIONS (1)
  - Breast pain [Recovered/Resolved]
